FAERS Safety Report 6783493-4 (Version None)
Quarter: 2010Q2

REPORT INFORMATION
  Report Type: 
  Country: None (occurrence: None)
  Receive Date: 20100622
  Receipt Date: 20100608
  Transmission Date: 20101027
  Serious: Yes (Other)
  Sender: FDA-Public Use
  Company Number: PHHY2010CA37726

PATIENT
  Sex: Female

DRUGS (3)
  1. CLOZARIL [Suspect]
     Indication: SCHIZOPHRENIA
     Dosage: UNK
     Dates: start: 20100422
  2. LITHIUM [Concomitant]
  3. SEROQUEL [Concomitant]
     Dosage: UNK

REACTIONS (3)
  - METABOLIC DISORDER [None]
  - RENAL FAILURE [None]
  - SCHIZOPHRENIA [None]
